FAERS Safety Report 9973727 (Version 1)
Quarter: 2014Q1

REPORT INFORMATION
  Report Type: Spontaneous
  Country: US (occurrence: None)
  Receive Date: 20140214
  Receipt Date: 20140214
  Transmission Date: 20141002
  Serious: Yes (Other)
  Sender: FDA-Public Use
  Company Number: US-013451

PATIENT
  Age: 56 Year
  Sex: Female
  Weight: 65.77 kg

DRUGS (10)
  1. PICO-SALAX [Suspect]
     Dosage: BOTH PATCKETS TAKEN SIX HOURS APART ORAL
     Route: 048
  2. PROVENTIL [Concomitant]
  3. SYMBICORT [Concomitant]
  4. VERAPAMIL [Concomitant]
  5. PREMARIN [Concomitant]
  6. SYNTHROID [Concomitant]
  7. BACLOFEN [Concomitant]
  8. WELLBUTRIN [Concomitant]
  9. ELAVIL [Concomitant]
  10. IMITREX [Concomitant]

REACTIONS (1)
  - Drug ineffective [None]
